FAERS Safety Report 4974089-5 (Version None)
Quarter: 2006Q2

REPORT INFORMATION
  Report Type: 
  Country: None (occurrence: None)
  Receive Date: 20060417
  Receipt Date: 20051130
  Transmission Date: 20061013
  Serious: Yes (Other)
  Sender: FDA-Public Use
  Company Number: US-ROCHE-427205

PATIENT
  Age: 19 Year
  Sex: Female
  Weight: 59 kg

DRUGS (7)
  1. ACCUTANE [Suspect]
     Indication: ACNE
     Dosage: 20 WEEK COURSE.
     Route: 048
     Dates: start: 19960524, end: 19960614
  2. ACCUTANE [Suspect]
     Dosage: 20 WEEK COURSE.
     Route: 048
     Dates: start: 19960614
  3. ACCUTANE [Suspect]
     Route: 048
     Dates: start: 19970615, end: 19970615
  4. ACCUTANE [Suspect]
     Route: 048
     Dates: start: 20000615, end: 20001115
  5. ORTHO TRI-CYCLEN [Concomitant]
  6. LO/OVRAL [Concomitant]
  7. ALBUTEROL [Concomitant]

REACTIONS (34)
  - ARTHRALGIA [None]
  - BLOOD CHOLESTEROL INCREASED [None]
  - BLOOD LACTATE DEHYDROGENASE INCREASED [None]
  - BLOOD TRIGLYCERIDES INCREASED [None]
  - BRONCHITIS [None]
  - COLITIS [None]
  - COLITIS ULCERATIVE [None]
  - CONJUNCTIVITIS [None]
  - COUGH [None]
  - DECREASED APPETITE [None]
  - EAR PAIN [None]
  - FEELING HOT [None]
  - GASTROINTESTINAL DISORDER [None]
  - HAEMORRHOIDS [None]
  - INFLAMMATORY BOWEL DISEASE [None]
  - INTESTINAL HAEMORRHAGE [None]
  - IRRITABLE BOWEL SYNDROME [None]
  - LIP DRY [None]
  - LOW DENSITY LIPOPROTEIN INCREASED [None]
  - MOTION SICKNESS [None]
  - MULTIPLE ALLERGIES [None]
  - NASAL CONGESTION [None]
  - NASAL DRYNESS [None]
  - NASAL TURBINATE HYPERTROPHY [None]
  - OTITIS MEDIA [None]
  - PAIN [None]
  - PALPITATIONS [None]
  - PATELLOFEMORAL PAIN SYNDROME [None]
  - PHARYNGITIS [None]
  - PHARYNGITIS STREPTOCOCCAL [None]
  - RECTAL HAEMORRHAGE [None]
  - SINUS CONGESTION [None]
  - UPPER RESPIRATORY TRACT INFECTION [None]
  - WEIGHT DECREASED [None]
